FAERS Safety Report 6746981-2 (Version None)
Quarter: 2010Q2

REPORT INFORMATION
  Report Type: 
  Country: None (occurrence: None)
  Receive Date: 20100526
  Receipt Date: 20100507
  Transmission Date: 20101027
  Serious: Yes (Hospitalization)
  Sender: FDA-Public Use
  Company Number: 7004339

PATIENT
  Sex: Male
  Weight: 1.9 kg

DRUGS (2)
  1. SEROPHENE [Suspect]
     Indication: OVULATION DISORDER
     Dosage: 50 MG, PRODUCT ADMISTERED TO MOTHER IN FRAME OF OVULATION STIMULATION
  2. H1N1 VACCINE (INFLUENZA VACCINE) [Concomitant]

REACTIONS (4)
  - DEHYDRATION [None]
  - FOETAL GROWTH RETARDATION [None]
  - HYPOGLYCAEMIA NEONATAL [None]
  - MATERNAL DRUGS AFFECTING FOETUS [None]
